FAERS Safety Report 20083932 (Version 1)
Quarter: 2021Q4

REPORT INFORMATION
  Report Type: Spontaneous
  Country: NL (occurrence: NL)
  Receive Date: 20211118
  Receipt Date: 20211118
  Transmission Date: 20220303
  Serious: Yes (Other)
  Sender: FDA-Public Use
  Company Number: NL-LRB-00704271

PATIENT
  Age: 68 Year
  Sex: Female
  Weight: 104 kg

DRUGS (11)
  1. NAPROXEN [Suspect]
     Active Substance: NAPROXEN
     Indication: Rheumatic disorder
     Dosage: 500 MILLIGRAM, TWO TIMES A DAY(2 X DAAGS)
     Route: 065
     Dates: start: 202110, end: 20211021
  2. ASPIRIN [Concomitant]
     Active Substance: ASPIRIN
     Indication: Product used for unknown indication
     Dosage: 80 MILLIGRAM(TABLET 80 MG)
     Route: 065
  3. TICAGRELOR [Concomitant]
     Active Substance: TICAGRELOR
     Indication: Product used for unknown indication
     Dosage: 90 MILLIGRAM(TABLET, 90 MG (MILLIGRAM)
     Route: 065
  4. EZETIMIBE [Concomitant]
     Active Substance: EZETIMIBE
     Indication: Product used for unknown indication
     Dosage: 10 MILLIGRAM(TABLET, 10 MG (MILLIGRAM)
     Route: 065
  5. FOLIC ACID [Concomitant]
     Active Substance: FOLIC ACID
     Indication: Product used for unknown indication
     Dosage: 5 MILLIGRAM(TABLET, 5 MG (MILLIGRAM)
     Route: 065
  6. ISORDIL [Concomitant]
     Active Substance: ISOSORBIDE DINITRATE
     Indication: Product used for unknown indication
     Dosage: 5 MILLIGRAM(TABLET, 5 MG (MILLIGRAM)
     Route: 065
  7. LOSARTAN [Concomitant]
     Active Substance: LOSARTAN
     Indication: Product used for unknown indication
     Dosage: 100 MILLIGRAM(FILMOMHULDE TABLET, 100 MG (MILLIGRAM)
     Route: 065
  8. METHOTREXATE (METHOTREXATE SODIUM) [Concomitant]
     Active Substance: METHOTREXATE SODIUM
     Indication: Product used for unknown indication
     Dosage: 2.5 MILLIGRAM(TABLET, 2,5 MG (MILLIGRAM)
     Route: 065
  9. METOPROLOL SUCCINATE [Concomitant]
     Active Substance: METOPROLOL SUCCINATE
     Indication: Product used for unknown indication
     Dosage: 50 MILLIGRAM(TABLET MET GEREGULEERDE AFGIFTE, 50 MG (MILLIGRAM)
     Route: 065
  10. ACETAMINOPHEN [Concomitant]
     Active Substance: ACETAMINOPHEN
     Indication: Product used for unknown indication
     Dosage: 500 MILLIGRAM(TABLET, 500 MG (MILLIGRAM)
     Route: 065
  11. VITAMIN D WITH OMEGA 3 [Concomitant]
     Indication: Product used for unknown indication
     Dosage: UNK
     Route: 065

REACTIONS (5)
  - Hallucination [Recovered/Resolved]
  - Headache [Recovered/Resolved]
  - Chest pain [Recovered/Resolved]
  - Dyspnoea [Recovered/Resolved]
  - Dizziness [Recovered/Resolved]

NARRATIVE: CASE EVENT DATE: 20211021
